FAERS Safety Report 24327550 (Version 1)
Quarter: 2024Q3

REPORT INFORMATION
  Report Type: Spontaneous
  Country: KR (occurrence: KR)
  Receive Date: 20240917
  Receipt Date: 20240917
  Transmission Date: 20241017
  Serious: No
  Sender: ASTELLAS
  Company Number: KR-ASTELLAS-2024-AER-004849

PATIENT
  Sex: Male

DRUGS (7)
  1. VESICARE [Suspect]
     Active Substance: SOLIFENACIN SUCCINATE
     Indication: Pollakiuria
     Route: 065
  2. VESICARE [Suspect]
     Active Substance: SOLIFENACIN SUCCINATE
     Indication: Urge incontinence
     Dosage: ONE TABLET ONCE DAILY
     Route: 065
     Dates: start: 2024
  3. MIRABEGRON [Suspect]
     Active Substance: MIRABEGRON
     Indication: Pollakiuria
     Route: 065
     Dates: end: 2024
  4. MIRABEGRON [Suspect]
     Active Substance: MIRABEGRON
     Indication: Urge incontinence
  5. CHOLINE ALFOSCERATE [Concomitant]
     Active Substance: CHOLINE ALFOSCERATE
     Indication: Cognitive disorder
     Route: 065
  6. LAPEZIL [Concomitant]
     Indication: Dementia
     Route: 065
  7. HYDROCHLOROTHIAZIDE\OLMESARTAN MEDOXOMIL [Concomitant]
     Active Substance: HYDROCHLOROTHIAZIDE\OLMESARTAN MEDOXOMIL
     Indication: Hypertension
     Route: 065

REACTIONS (4)
  - Urinary incontinence [Unknown]
  - Dysuria [Unknown]
  - Wrong product administered [Unknown]
  - Off label use [Unknown]

NARRATIVE: CASE EVENT DATE: 20240101
